FAERS Safety Report 17896305 (Version 1)
Quarter: 2020Q2

REPORT INFORMATION
  Report Type: Spontaneous
  Country: US (occurrence: US)
  Receive Date: 20200615
  Receipt Date: 20200615
  Transmission Date: 20200714
  Serious: Yes (Other)
  Sender: FDA-Public Use
  Company Number: None

PATIENT
  Age: 69 Year
  Sex: Female
  Weight: 60.75 kg

DRUGS (8)
  1. OMEGA [Concomitant]
  2. LISINOPRIL. [Concomitant]
     Active Substance: LISINOPRIL
  3. ASPIRIN 81MG [Concomitant]
     Active Substance: ASPIRIN
  4. PROTANDIM [Concomitant]
     Active Substance: DIETARY SUPPLEMENT
  5. MULTIVITAMIN [Concomitant]
     Active Substance: VITAMINS
  6. METFORMIN [Suspect]
     Active Substance: METFORMIN HYDROCHLORIDE
     Indication: TYPE 2 DIABETES MELLITUS
     Route: 048
     Dates: start: 20200220, end: 20200608
  7. PROBOTICS [Concomitant]
  8. MEFORMIN 500MG [Concomitant]

REACTIONS (4)
  - Recalled product administered [None]
  - Paraesthesia [None]
  - Urticaria [None]
  - Pruritus [None]

NARRATIVE: CASE EVENT DATE: 20200215
